FAERS Safety Report 11461332 (Version 1)
Quarter: 2015Q3

REPORT INFORMATION
  Report Type: Spontaneous
  Country: US (occurrence: US)
  Receive Date: 20150831
  Receipt Date: 20150831
  Transmission Date: 20151125
  Serious: No
  Sender: FDA-Public Use
  Company Number: US-ELI_LILLY_AND_COMPANY-US201006005754

PATIENT
  Age: 58 Year
  Sex: Male

DRUGS (5)
  1. CYMBALTA [Suspect]
     Active Substance: DULOXETINE HYDROCHLORIDE
     Dosage: 60 MG, UNK
  2. XANAX [Concomitant]
     Active Substance: ALPRAZOLAM
     Indication: ANXIETY
     Dosage: 0.5 MG, UNK
  3. CYMBALTA [Suspect]
     Active Substance: DULOXETINE HYDROCHLORIDE
     Dosage: 30 MG, UNK
  4. CYMBALTA [Suspect]
     Active Substance: DULOXETINE HYDROCHLORIDE
     Dosage: 90 MG, DAILY (1/D)
  5. CYMBALTA [Suspect]
     Active Substance: DULOXETINE HYDROCHLORIDE
     Indication: ANXIETY
     Dosage: 30 MG, UNK

REACTIONS (10)
  - Crying [Unknown]
  - Faeces discoloured [Not Recovered/Not Resolved]
  - Fear [Unknown]
  - Vision blurred [Unknown]
  - Tremor [Not Recovered/Not Resolved]
  - Feeling abnormal [Unknown]
  - Drug effect decreased [Not Recovered/Not Resolved]
  - Gastroenteritis viral [Recovered/Resolved]
  - Accident at work [Recovered/Resolved]
  - Abnormal faeces [Not Recovered/Not Resolved]
